FAERS Safety Report 22053679 (Version 1)
Quarter: 2023Q1

REPORT INFORMATION
  Report Type: Spontaneous
  Country: NL (occurrence: NL)
  Receive Date: 20230302
  Receipt Date: 20230302
  Transmission Date: 20230417
  Serious: Yes (Other)
  Sender: FDA-Public Use
  Company Number: None

PATIENT

DRUGS (3)
  1. FLUTICASONE PROPIONATE [Suspect]
     Active Substance: FLUTICASONE PROPIONATE
     Indication: Sinus congestion
     Dosage: 2 DF; 2 X PER DAY 2 AMPOULES DISSOLVED IN A SALINE SOLUTION
     Route: 065
     Dates: start: 20230119, end: 20230209
  2. TRESIBA FLEXTOUCH (INSULIN DEGLUDEC) [Concomitant]
     Indication: Product used for unknown indication
     Dosage: UNK
     Route: 065
  3. NOVORAPID [Concomitant]
     Active Substance: INSULIN ASPART
     Indication: Product used for unknown indication
     Dosage: UNK
     Route: 065

REACTIONS (1)
  - Hypoglycaemia [Recovered/Resolved]
